FAERS Safety Report 9438603 (Version 4)
Quarter: 2013Q4

REPORT INFORMATION
  Report Type: Report from Study
  Country: DE (occurrence: DE)
  Receive Date: 20130802
  Receipt Date: 20131009
  Transmission Date: 20140711
  Serious: Yes (Death, Hospitalization)
  Sender: FDA-Public Use
  Company Number: DE-PFIZER INC-2013211502

PATIENT
  Age: 75 Year
  Sex: Male
  Weight: 97 kg

DRUGS (10)
  1. MYLOTARG [Suspect]
     Indication: ACUTE MYELOID LEUKAEMIA
     Dosage: 6.54 MG, UNK
     Route: 042
     Dates: start: 20130703, end: 20130703
  2. ZAVEDOS [Suspect]
     Indication: ACUTE MYELOID LEUKAEMIA
     Dosage: 26 MG, UNK
     Route: 042
     Dates: start: 20130701, end: 20130703
  3. ARA-CELL [Suspect]
     Indication: ACUTE MYELOID LEUKAEMIA
     Dosage: 218 MG, UNK
     Route: 042
     Dates: start: 20130701, end: 20130708
  4. VEPESID [Suspect]
     Indication: ACUTE MYELOID LEUKAEMIA
     Dosage: 218 MG, UNK
     Route: 042
     Dates: start: 20130701, end: 20130703
  5. ATRA [Concomitant]
     Indication: ACUTE MYELOID LEUKAEMIA
     Dosage: 100 MG, UNK
     Dates: start: 20130706, end: 20130708
  6. ATRA [Concomitant]
     Dosage: 30 MG, UNK
     Dates: start: 20130709, end: 20130711
  7. ENALAPRIL [Concomitant]
     Indication: HYPERTENSION
     Dosage: 10 MG, 1X/DAY
     Route: 048
     Dates: end: 20130711
  8. HCT [Concomitant]
     Indication: HYPERTENSION
     Dosage: 12.5 MG, 1X/DAY
     Route: 048
     Dates: end: 20130711
  9. METOPROLOL SUCCINATE [Concomitant]
     Indication: HYPERTENSION
     Dosage: 142.5 MG, 1X/DAY (95 MG IN THE MORNING, 47.5 MG IN THE EVENING)
     Route: 048
     Dates: end: 20130711
  10. LYRICA [Concomitant]
     Indication: EPILEPSY
     Dosage: 225 MG, 2X/DAY
     Dates: end: 20130711

REACTIONS (1)
  - Pleural effusion [Fatal]
